FAERS Safety Report 7094355-X (Version None)
Quarter: 2010Q4

REPORT INFORMATION
  Report Type: 
  Country: None (occurrence: None)
  Receive Date: 20101110
  Receipt Date: 20101102
  Transmission Date: 20110411
  Serious: Yes (Other)
  Sender: FDA-Public Use
  Company Number: DE-ABBOTT-10P-062-0682835-00

PATIENT
  Sex: Female

DRUGS (3)
  1. HUMIRA [Suspect]
     Indication: PSORIATIC ARTHROPATHY
     Route: 058
     Dates: start: 20100329, end: 20101004
  2. CORTISONE [Concomitant]
     Indication: PSORIATIC ARTHROPATHY
     Dosage: UNK.
  3. VOLTAREN [Concomitant]
     Indication: PSORIATIC ARTHROPATHY
     Dosage: UNK.

REACTIONS (1)
  - PULMONARY MASS [None]
